FAERS Safety Report 23712343 (Version 4)
Quarter: 2024Q2

REPORT INFORMATION
  Report Type: Report from Study
  Country: CA (occurrence: CA)
  Receive Date: 20240405
  Receipt Date: 20240517
  Transmission Date: 20240716
  Serious: Yes (Other)
  Sender: FDA-Public Use
  Company Number: CA-OTSUKA-2020_008393

PATIENT
  Age: 52 Year
  Sex: Female

DRUGS (1)
  1. ARIPIPRAZOLE [Suspect]
     Active Substance: ARIPIPRAZOLE
     Indication: Schizophrenia
     Dosage: 400 MG, 21 DAYS (EVERY 3WEEKS)
     Route: 030

REACTIONS (9)
  - Hallucination, auditory [Recovered/Resolved]
  - Depression [Recovered/Resolved]
  - Product availability issue [Unknown]
  - Inappropriate schedule of product administration [Unknown]
  - Product administered by wrong person [Unknown]
  - Product dose omission issue [Unknown]
  - Poor personal hygiene [Unknown]
  - Alcohol use [Unknown]
  - Substance use [Unknown]

NARRATIVE: CASE EVENT DATE: 20240301
